FAERS Safety Report 7752779-9 (Version None)
Quarter: 2011Q3

REPORT INFORMATION
  Report Type: 
  Country: None (occurrence: None)
  Receive Date: 20110913
  Receipt Date: 20110902
  Transmission Date: 20111222
  Serious: Yes (Other)
  Sender: FDA-Public Use
  Company Number: 2011SP039402

PATIENT
  Age: 42 Year
  Sex: Female

DRUGS (1)
  1. DESOGESTREL AND ETHINYL ESTRADIOL [Suspect]
     Indication: MENSTRUATION DELAYED
     Dosage: 1 DF
     Dates: start: 20110813, end: 20110814

REACTIONS (4)
  - DRUG HYPERSENSITIVITY [None]
  - OFF LABEL USE [None]
  - SWELLING FACE [None]
  - HOT FLUSH [None]
